FAERS Safety Report 9626527 (Version 2)
Quarter: 2014Q1

REPORT INFORMATION
  Report Type: Spontaneous
  Country: JP (occurrence: JP)
  Receive Date: 20131016
  Receipt Date: 20140307
  Transmission Date: 20141002
  Serious: Yes (Hospitalization)
  Sender: FDA-Public Use
  Company Number: JP-GE HEALTHCARE MEDICAL DIAGNOSTICS-OSCN-PR-1310S-0084

PATIENT
  Age: 66 Year
  Sex: Male

DRUGS (3)
  1. OMNISCAN [Suspect]
     Indication: BILE DUCT STONE
     Route: 050
     Dates: start: 20131004, end: 20131004
  2. OMNISCAN [Suspect]
     Indication: THERAPEUTIC PROCEDURE
  3. SULPERAZON [Suspect]
     Route: 042
     Dates: start: 20131004

REACTIONS (4)
  - White blood cell count increased [Not Recovered/Not Resolved]
  - Hepatic function abnormal [Not Recovered/Not Resolved]
  - Diarrhoea [Not Recovered/Not Resolved]
  - Urticaria [Recovered/Resolved]
